FAERS Safety Report 18650115 (Version 1)
Quarter: 2020Q4

REPORT INFORMATION
  Report Type: Report from Study
  Country: GB (occurrence: GB)
  Receive Date: 20201222
  Receipt Date: 20201222
  Transmission Date: 20210114
  Serious: Yes (Other)
  Sender: FDA-Public Use
  Company Number: GB-JNJFOC-20201228455

PATIENT
  Sex: Male

DRUGS (2)
  1. STELARA [Suspect]
     Active Substance: USTEKINUMAB
  2. STELARA [Suspect]
     Active Substance: USTEKINUMAB
     Indication: CROHN^S DISEASE
     Route: 058
     Dates: start: 20200820

REACTIONS (15)
  - Dehydration [Unknown]
  - Localised infection [Unknown]
  - Gingival bleeding [Unknown]
  - Lethargy [Unknown]
  - Inflammation [Unknown]
  - Headache [Unknown]
  - Flushing [Unknown]
  - Pain in extremity [Unknown]
  - Ear infection [Unknown]
  - Tinea pedis [Unknown]
  - Injection site pain [Unknown]
  - Feeling abnormal [Unknown]
  - Dry skin [Unknown]
  - Depression [Unknown]
  - Insomnia [Unknown]

NARRATIVE: CASE EVENT DATE: 2020
